FAERS Safety Report 24162320 (Version 1)
Quarter: 2024Q3

REPORT INFORMATION
  Report Type: Spontaneous
  Country: US (occurrence: US)
  Receive Date: 20240801
  Receipt Date: 20240801
  Transmission Date: 20241017
  Serious: No
  Sender: TAKEDA
  Company Number: US-TAKEDA-2024TUS076973

PATIENT
  Age: 25 Year
  Sex: Male
  Weight: 74 kg

DRUGS (2)
  1. GAMMAGARD S/D [Suspect]
     Active Substance: HUMAN IMMUNOGLOBULIN G
     Indication: Blood immunoglobulin G decreased
     Dosage: 40 GRAM
     Route: 065
     Dates: start: 20240729, end: 20240729
  2. GAMMAGARD S/D [Suspect]
     Active Substance: HUMAN IMMUNOGLOBULIN G
     Indication: Blood immunoglobulin G decreased
     Dosage: 40 GRAM
     Route: 065
     Dates: start: 20240729, end: 20240729

REACTIONS (6)
  - Incorrect dose administered [Unknown]
  - Drug intolerance [Unknown]
  - Oxygen saturation decreased [Recovered/Resolved]
  - Feeling cold [Unknown]
  - Pallor [Unknown]
  - Tremor [Unknown]
